FAERS Safety Report 9131313 (Version 1)
Quarter: 2013Q1

REPORT INFORMATION
  Report Type: Report from Study
  Country: CA (occurrence: CA)
  Receive Date: 20130301
  Receipt Date: 20130301
  Transmission Date: 20140127
  Serious: Yes (Other)
  Sender: FDA-Public Use
  Company Number: CA-JNJFOC-20130213959

PATIENT
  Sex: Female
  Weight: 58 kg

DRUGS (2)
  1. REMICADE [Suspect]
     Indication: CROHN^S DISEASE
     Dosage: FREQUENCY: EVERY 6 TO EVERY 8 WEEKS.
     Route: 042
     Dates: start: 20070831
  2. METHOTREXATE [Concomitant]
     Route: 048

REACTIONS (1)
  - Arthritis [Recovering/Resolving]
